FAERS Safety Report 24935969 (Version 1)
Quarter: 2025Q1

REPORT INFORMATION
  Report Type: Spontaneous
  Country: US (occurrence: US)
  Receive Date: 20250206
  Receipt Date: 20250206
  Transmission Date: 20250408
  Serious: No
  Sender: ROCHE
  Company Number: US-ROCHE-10000192821

PATIENT
  Age: 54 Year
  Sex: Female

DRUGS (1)
  1. ITOVEBI [Suspect]
     Active Substance: INAVOLISIB
     Indication: Breast cancer recurrent
     Route: 048
     Dates: start: 202411

REACTIONS (2)
  - Dry eye [Unknown]
  - Vision blurred [Unknown]
